FAERS Safety Report 5378810-6 (Version None)
Quarter: 2007Q3

REPORT INFORMATION
  Report Type: 
  Country: None (occurrence: None)
  Receive Date: 20070705
  Receipt Date: 20070626
  Transmission Date: 20080115
  Serious: Yes (Hospitalization, Other)
  Sender: FDA-Public Use
  Company Number: BE-ABBOTT-07P-013-0372702-00

PATIENT
  Age: 70 Year
  Sex: Female

DRUGS (5)
  1. HYDROCHLOROTHIAZIDE [Suspect]
     Indication: HYPERTENSION
  2. HYDROCHLOROTHIAZIDE [Suspect]
  3. BISOPROLOL [Concomitant]
     Indication: HYPERTENSION
  4. ASPIRIN [Concomitant]
     Indication: THROMBOSIS PROPHYLAXIS
  5. VALSARTAN [Concomitant]
     Indication: DRUG USE FOR UNKNOWN INDICATION

REACTIONS (2)
  - NON-CARDIOGENIC PULMONARY OEDEMA [None]
  - SHOCK [None]
